FAERS Safety Report 4349755-5 (Version None)
Quarter: 2004Q2

REPORT INFORMATION
  Report Type: 
  Country: None (occurrence: None)
  Receive Date: 20040426
  Receipt Date: 20040306
  Transmission Date: 20050107
  Serious: Yes (Hospitalization, Other)
  Sender: FDA-Public Use
  Company Number: KII-2004-0009583

PATIENT
  Age: 37 Year
  Sex: Male
  Weight: 124.7 kg

DRUGS (5)
  1. MORPHINE SULFATE [Suspect]
     Indication: DRUG USE FOR UNKNOWN INDICATION
  2. BENZODIAZEPINE DERIVATIVES () [Suspect]
     Indication: DRUG USE FOR UNKNOWN INDICATION
  3. TETRAHYDROCANNABINOL (TETRAHYDROCANNABINOL) [Suspect]
     Indication: DRUG USE FOR UNKNOWN INDICATION
  4. ETHANOL (ETHANOL) [Suspect]
     Indication: DRUG USE FOR UNKNOWN INDICATION
  5. ANTIPSYCHOTICS [Concomitant]

REACTIONS (19)
  - AGGRESSION [None]
  - ALCOHOL USE [None]
  - APNOEA [None]
  - BLOOD GLUCOSE INCREASED [None]
  - BLOOD PH ABNORMAL [None]
  - BLOOD PRESSURE INCREASED [None]
  - COMA [None]
  - CONVULSION [None]
  - DRUG ABUSER [None]
  - HEART RATE INCREASED [None]
  - MIOSIS [None]
  - MULTIPLE DRUG OVERDOSE [None]
  - PCO2 ABNORMAL [None]
  - PO2 ABNORMAL [None]
  - PULMONARY OEDEMA [None]
  - SALIVARY HYPERSECRETION [None]
  - SOMNOLENCE [None]
  - SUICIDAL IDEATION [None]
  - WHITE BLOOD CELL COUNT INCREASED [None]
